FAERS Safety Report 5610044-X (Version None)
Quarter: 2008Q1

REPORT INFORMATION
  Report Type: 
  Country: None (occurrence: None)
  Receive Date: 20080131
  Receipt Date: 20080124
  Transmission Date: 20080703
  Serious: Yes (Disabling)
  Sender: FDA-Public Use
  Company Number: FR-PFIZER INC-2008007973

PATIENT
  Sex: Female

DRUGS (3)
  1. TAHOR [Suspect]
     Indication: HYPERCHOLESTEROLAEMIA
     Route: 048
     Dates: start: 20050610, end: 20071120
  2. PROPOFAN [Suspect]
     Indication: PAIN
     Dosage: TEXT:4 DF DAILY  TDD:4 DF
  3. CLONAZEPAM [Suspect]
     Indication: PAIN
     Dosage: TEXT:2.5MG/ML

REACTIONS (1)
  - MUSCLE RUPTURE [None]
